FAERS Safety Report 20918554 (Version 1)
Quarter: 2022Q2

REPORT INFORMATION
  Report Type: Spontaneous
  Country: US (occurrence: None)
  Receive Date: 20220603
  Receipt Date: 20220603
  Transmission Date: 20220720
  Serious: Yes (Hospitalization)
  Sender: FDA-Public Use
  Company Number: None

PATIENT
  Sex: Female

DRUGS (1)
  1. HUMIRA [Suspect]
     Active Substance: ADALIMUMAB
     Indication: Ankylosing spondylitis
     Dosage: 40 MG/0.8ML?INJECT ONE SYRINGE UNDER THE SKIN (SUBCUTANEOUS INJECTION) EVERY WEEK
     Route: 058
     Dates: start: 20220308

REACTIONS (4)
  - Condition aggravated [None]
  - Musculoskeletal stiffness [None]
  - Fatigue [None]
  - Insurance issue [None]
